FAERS Safety Report 4332878-4 (Version None)
Quarter: 2004Q1

REPORT INFORMATION
  Report Type: 
  Country: None (occurrence: None)
  Receive Date: 20040330
  Receipt Date: 20040319
  Transmission Date: 20041129
  Serious: Yes (Hospitalization)
  Sender: FDA-Public Use
  Company Number: 230917K04USA

PATIENT
  Age: 42 Year
  Sex: Female

DRUGS (6)
  1. REBIF [Suspect]
     Indication: MULTIPLE SCLEROSIS
     Dates: start: 20031105, end: 20031226
  2. BACLOFEN [Concomitant]
  3. GABAPENTIN [Concomitant]
  4. ESOMEPRAZOLE [Concomitant]
  5. RAMIPRIL [Concomitant]
  6. INSULIN [Concomitant]

REACTIONS (24)
  - AREFLEXIA [None]
  - ARTHRALGIA [None]
  - ASTHENIA [None]
  - CHILLS [None]
  - CONDITION AGGRAVATED [None]
  - CONSTIPATION [None]
  - DEPRESSION [None]
  - DIARRHOEA [None]
  - DISEASE RECURRENCE [None]
  - DYSPNOEA [None]
  - EXTREMITY CONTRACTURE [None]
  - HEADACHE [None]
  - HEART SOUNDS ABNORMAL [None]
  - HYPOAESTHESIA [None]
  - INFLUENZA [None]
  - MULTIPLE SCLEROSIS [None]
  - MUSCLE SPASMS [None]
  - MYELITIS TRANSVERSE [None]
  - PYREXIA [None]
  - QUADRIPLEGIA [None]
  - RESPIRATORY DISTRESS [None]
  - SPEECH DISORDER [None]
  - SPINAL CORD DISORDER [None]
  - URINARY TRACT INFECTION [None]
